FAERS Safety Report 7533869 (Version 4)
Quarter: 2013Q2

REPORT INFORMATION
  Report Type: Report from Study
  Country: JP (occurrence: JP)
  Receive Date: 20100809
  Receipt Date: 20130402
  Transmission Date: 20140414
  Serious: Yes (Death, Hospitalization, Other)
  Sender: FDA-Public Use
  Company Number: JP-GENZYME-THYM-1001729

PATIENT
  Age: 37 Year
  Sex: Female
  Weight: 42 kg

DRUGS (58)
  1. THYMOGLOBULIN [Suspect]
     Indication: RENAL TRANSPLANT
     Dosage: 100 MG, QD
     Route: 042
     Dates: start: 20090921, end: 20090921
  2. BROTIZOLAM [Concomitant]
     Indication: INSOMNIA
     Dosage: UNK
     Route: 065
     Dates: start: 20090923, end: 20091104
  3. BROTIZOLAM [Concomitant]
     Dosage: UNK
     Route: 065
     Dates: start: 20100115, end: 20100310
  4. ZOLPIDEM [Concomitant]
     Indication: INSOMNIA
     Dosage: UNK
     Route: 065
     Dates: start: 20090923, end: 20091104
  5. ZOLPIDEM [Concomitant]
     Dosage: UNK
     Route: 065
     Dates: start: 20100115, end: 20100310
  6. VORICONAZOLE [Concomitant]
     Indication: INFECTION PROPHYLAXIS
     Dosage: UNK
     Route: 065
     Dates: start: 20090923, end: 20091104
  7. VORICONAZOLE [Concomitant]
     Dosage: UNK
     Route: 065
     Dates: start: 20100115, end: 20100221
  8. OMEPRAZOL [Concomitant]
     Indication: PROPHYLAXIS AGAINST GASTROINTESTINAL ULCER
     Dosage: UNK
     Route: 065
     Dates: start: 20090923, end: 20091104
  9. OMEPRAZOL [Concomitant]
     Dosage: UNK
     Route: 065
     Dates: start: 20100115, end: 20100309
  10. SULFAMETHOPRIM [Concomitant]
     Indication: INFECTION PROPHYLAXIS
     Dosage: UNK
     Route: 065
     Dates: start: 20090921, end: 20100310
  11. URSODEOXYCHOLIC ACID [Concomitant]
     Indication: PROPHYLAXIS
     Dosage: UNK
     Route: 065
     Dates: start: 20090923, end: 20091104
  12. URSODEOXYCHOLIC ACID [Concomitant]
     Dosage: UNK
     Route: 065
     Dates: start: 20100115, end: 20100310
  13. TACROLIMUS [Concomitant]
     Indication: ACUTE MYELOID LEUKAEMIA
     Dosage: UNK
     Route: 065
     Dates: start: 20091023, end: 20091031
  14. TACROLIMUS [Concomitant]
     Dosage: UNK
     Route: 065
     Dates: start: 20090924, end: 20091023
  15. ACICLOVIR [Concomitant]
     Indication: INFECTION PROPHYLAXIS
     Dosage: UNK
     Route: 065
     Dates: start: 20091029, end: 20091031
  16. ACICLOVIR [Concomitant]
     Dosage: UNK
     Route: 065
     Dates: start: 20100115, end: 20100309
  17. ACICLOVIR [Concomitant]
     Dosage: UNK
     Route: 065
     Dates: start: 20090921, end: 20091028
  18. TRAZODONE HYDROCHLORIDE [Concomitant]
     Indication: INSOMNIA
     Dosage: UNK
     Route: 065
     Dates: start: 20091027, end: 20091103
  19. HYDROXYZINE PAMOATE [Concomitant]
     Indication: INSOMNIA
     Dosage: UNK
     Route: 065
     Dates: start: 20100210, end: 20100309
  20. TOSUFLOXACIN TOSILATE [Concomitant]
     Indication: INFECTION PROPHYLAXIS
     Dosage: UNK
     Route: 065
     Dates: start: 20100115, end: 20100204
  21. TOSUFLOXACIN TOSILATE [Concomitant]
     Dosage: UNK
     Route: 065
     Dates: start: 20100222, end: 20100310
  22. ITRACONAZOLE [Concomitant]
     Indication: INFECTION PROPHYLAXIS
     Dosage: UNK
     Route: 065
     Dates: start: 20100223, end: 20100309
  23. METHYLPREDNISOLONE SODIUM SUCCINATE [Concomitant]
     Indication: PREMEDICATION
     Dosage: UNK
     Route: 065
     Dates: start: 20090921, end: 20090921
  24. CHLORPHENIRAMINE MALEATE [Concomitant]
     Indication: PRURITUS
     Dosage: UNK
     Route: 065
     Dates: start: 20090925, end: 20090925
  25. CHLORPHENIRAMINE MALEATE [Concomitant]
     Dosage: UNK
     Route: 065
     Dates: start: 20091007, end: 20091007
  26. CHLORPHENIRAMINE MALEATE [Concomitant]
     Dosage: UNK
     Route: 065
     Dates: start: 20091009, end: 20091009
  27. CHLORPHENIRAMINE MALEATE [Concomitant]
     Dosage: UNK
     Route: 065
     Dates: start: 20091012, end: 20091012
  28. CHLORPHENIRAMINE MALEATE [Concomitant]
     Dosage: UNK
     Route: 065
     Dates: start: 20091014, end: 20091014
  29. CHLORPHENIRAMINE MALEATE [Concomitant]
     Dosage: UNK
     Route: 065
     Dates: start: 20091019, end: 20091019
  30. CHLORPHENIRAMINE MALEATE [Concomitant]
     Dosage: UNK
     Route: 065
     Dates: start: 20100118, end: 20100118
  31. CHLORPHENIRAMINE MALEATE [Concomitant]
  32. HYDROCORTISONE SODIUM SUCCINATE [Concomitant]
     Indication: PRURITUS
     Dosage: UNK
     Route: 065
     Dates: start: 20090925, end: 20090925
  33. HYDROCORTISONE SODIUM SUCCINATE [Concomitant]
     Dosage: UNK
     Route: 065
     Dates: start: 20091007, end: 20091007
  34. HYDROCORTISONE SODIUM SUCCINATE [Concomitant]
     Dosage: UNK
     Route: 065
     Dates: start: 20091014, end: 20091014
  35. HYDROCORTISONE SODIUM SUCCINATE [Concomitant]
     Dosage: UNK
     Route: 065
     Dates: start: 20100122, end: 20100122
  36. HYDROCORTISONE SODIUM SUCCINATE [Concomitant]
     Dosage: UNK
     Route: 065
     Dates: start: 20100125, end: 20100125
  37. HYDROCORTISONE SODIUM SUCCINATE [Concomitant]
     Dosage: UNK
     Route: 065
     Dates: start: 20100127, end: 20100127
  38. HYDROCORTISONE SODIUM SUCCINATE [Concomitant]
     Dosage: UNK
     Route: 065
     Dates: start: 20100129, end: 20100129
  39. HYDROCORTISONE SODIUM SUCCINATE [Concomitant]
     Dosage: UNK
     Route: 065
     Dates: start: 20100201, end: 20100201
  40. HYDROCORTISONE SODIUM SUCCINATE [Concomitant]
     Dosage: UNK
     Route: 065
     Dates: start: 20100203, end: 20100203
  41. HYDROCORTISONE SODIUM SUCCINATE [Concomitant]
     Dosage: UNK
     Route: 065
     Dates: start: 20100205, end: 20100205
  42. HYDROCORTISONE SODIUM SUCCINATE [Concomitant]
     Dosage: UNK
     Route: 065
     Dates: start: 20100209, end: 20100209
  43. HYDROCORTISONE SODIUM SUCCINATE [Concomitant]
  44. METHOTREXATE [Concomitant]
     Indication: ACUTE MYELOID LEUKAEMIA
     Dosage: UNK
     Route: 065
     Dates: start: 20090926, end: 20090926
  45. METHOTREXATE [Concomitant]
     Dosage: UNK
     Route: 065
     Dates: start: 20090927, end: 20090927
  46. METHOTREXATE [Concomitant]
     Dosage: UNK
     Route: 065
     Dates: start: 20091001, end: 20091001
  47. METHOTREXATE [Concomitant]
     Dosage: UNK
     Route: 065
     Dates: start: 20091006, end: 20091006
  48. MAGNESIUM SULFATE [Concomitant]
     Indication: PROPHYLAXIS
     Dosage: UNK
     Route: 065
     Dates: start: 20090928, end: 20091022
  49. HYDROXYZINE HYDROCHLORIDE [Concomitant]
     Indication: INSOMNIA
     Dosage: UNK
     Route: 065
     Dates: start: 20091006, end: 20091006
  50. HYDROXYZINE HYDROCHLORIDE [Concomitant]
     Dosage: UNK
     Route: 065
     Dates: start: 20091007, end: 20091007
  51. HYDROXYZINE HYDROCHLORIDE [Concomitant]
     Dosage: UNK
     Route: 065
     Dates: start: 20091011, end: 20091011
  52. HYDROXYZINE HYDROCHLORIDE [Concomitant]
     Dosage: UNK
     Route: 065
     Dates: start: 20091014, end: 20091028
  53. HYDROXYZINE HYDROCHLORIDE [Concomitant]
     Dosage: UNK
     Route: 065
     Dates: start: 20100216, end: 20100221
  54. HYDROXYZINE HYDROCHLORIDE [Concomitant]
  55. ACLARUBICIN HYDROCHLORIDE [Concomitant]
     Indication: ACUTE MYELOID LEUKAEMIA
     Dosage: UNK
     Route: 065
     Dates: start: 20100119, end: 20100122
  56. GLYCERIN W [Concomitant]
     Indication: OEDEMA
     Dosage: UNK
     Route: 065
     Dates: start: 20091017, end: 20091021
  57. GRANISETRON HYDROCHLORIDE [Concomitant]
     Indication: ANTIEMETIC SUPPORTIVE CARE
     Dosage: UNK
     Route: 065
     Dates: start: 20100119, end: 20100122
  58. CYTARABINE [Concomitant]
     Indication: ACUTE MYELOID LEUKAEMIA
     Dosage: UNK
     Route: 065
     Dates: start: 20100118, end: 20100201

REACTIONS (9)
  - Oral disorder [Recovered/Resolved]
  - Graft versus host disease in skin [Recovered/Resolved]
  - Oedema [Recovered/Resolved]
  - Acute myeloid leukaemia recurrent [Fatal]
  - Neuropathy peripheral [Recovered/Resolved]
  - Toothache [Recovered/Resolved]
  - Pruritus [Recovered/Resolved]
  - Headache [Recovered/Resolved]
  - Pyrexia [Recovered/Resolved]
